FAERS Safety Report 15188281 (Version 1)
Quarter: 2018Q3

REPORT INFORMATION
  Report Type: Spontaneous
  Country: US (occurrence: US)
  Receive Date: 20180724
  Receipt Date: 20180724
  Transmission Date: 20181010
  Serious: No
  Sender: FDA-Public Use
  Company Number: US-TEVA-2018-US-931795

PATIENT

DRUGS (2)
  1. DOCETAXEL. [Suspect]
     Active Substance: DOCETAXEL
     Route: 065
     Dates: start: 20160129, end: 20160219
  2. TAXOTERE [Suspect]
     Active Substance: DOCETAXEL
     Route: 065

REACTIONS (3)
  - Madarosis [Unknown]
  - Emotional disorder [Unknown]
  - Alopecia [Unknown]
